FAERS Safety Report 7400295-6 (Version None)
Quarter: 2011Q2

REPORT INFORMATION
  Report Type: 
  Country: None (occurrence: None)
  Receive Date: 20110407
  Receipt Date: 20110329
  Transmission Date: 20111010
  Serious: Yes (Hospitalization)
  Sender: FDA-Public Use
  Company Number: BR-US-EMD SERONO, INC.-7050102

PATIENT
  Sex: Female

DRUGS (11)
  1. REBIF [Suspect]
     Indication: RELAPSING-REMITTING MULTIPLE SCLEROSIS
     Dates: start: 20060310
  2. ZELMAQ [Concomitant]
  3. TYLEX [Concomitant]
  4. FIBERS [Concomitant]
  5. LEXOTAN [Concomitant]
  6. SYNTHROID [Concomitant]
  7. ACETAMINOPHEN [Concomitant]
  8. MOTILIUM [Concomitant]
  9. CYMBALTA [Concomitant]
  10. OMEPRAZOLE [Concomitant]
  11. UMERTROL D [Concomitant]

REACTIONS (2)
  - GASTROINTESTINAL DISORDER [None]
  - FAECALOMA [None]
